FAERS Safety Report 6259639-3 (Version None)
Quarter: 2009Q3

REPORT INFORMATION
  Report Type: 
  Country: None (occurrence: None)
  Receive Date: 20090706
  Receipt Date: 20090706
  Transmission Date: 20100115
  Serious: Yes (Life-Threatening, Hospitalization)
  Sender: FDA-Public Use
  Company Number: None

PATIENT
  Sex: Female
  Weight: 63.9572 kg

DRUGS (2)
  1. REMICADE [Suspect]
     Indication: RHEUMATOID ARTHRITIS
     Dosage: IV DRIP
     Route: 041
     Dates: start: 20090416, end: 20090416
  2. REMICADE [Suspect]
     Indication: RHEUMATOID ARTHRITIS
     Dosage: IV DRIP
     Route: 041
     Dates: start: 20090430, end: 20090430

REACTIONS (2)
  - ACUTE MYELOID LEUKAEMIA [None]
  - MYELODYSPLASTIC SYNDROME [None]
